FAERS Safety Report 23063077 (Version 2)
Quarter: 2023Q4

REPORT INFORMATION
  Report Type: Spontaneous
  Country: US (occurrence: US)
  Receive Date: 20231013
  Receipt Date: 20231027
  Transmission Date: 20240110
  Serious: Yes (Other)
  Sender: FDA-Public Use
  Company Number: US-Accord-383173

PATIENT
  Age: 57 Year
  Sex: Male

DRUGS (8)
  1. QUETIAPINE [Suspect]
     Active Substance: QUETIAPINE
     Indication: Hallucination, visual
     Dosage: INCREASED TITRATION TO 150 MG
  2. OLANZAPINE [Suspect]
     Active Substance: OLANZAPINE
     Indication: Hallucination, visual
  3. RISPERIDONE [Suspect]
     Active Substance: RISPERIDONE
     Indication: Hallucination, visual
  4. CARBIDOPA\LEVODOPA [Concomitant]
     Active Substance: CARBIDOPA\LEVODOPA
     Indication: Parkinson^s disease
  5. CLONAZEPAM [Concomitant]
     Active Substance: CLONAZEPAM
     Indication: Parkinson^s disease
  6. PAROXETINE [Concomitant]
     Active Substance: PAROXETINE
     Indication: Parkinson^s disease
  7. RIVASTIGMINE [Concomitant]
     Active Substance: RIVASTIGMINE
     Indication: Parkinson^s disease
     Dosage: DOSE OPTIMIZATION
  8. MEMANTINE [Concomitant]
     Active Substance: MEMANTINE

REACTIONS (6)
  - Delusion [Recovering/Resolving]
  - Drug ineffective [Unknown]
  - Off label use [Unknown]
  - Hallucination [Recovering/Resolving]
  - Motor dysfunction [Unknown]
  - Condition aggravated [Unknown]
